FAERS Safety Report 7475223-8 (Version None)
Quarter: 2011Q2

REPORT INFORMATION
  Report Type: 
  Country: None (occurrence: None)
  Receive Date: 20110505
  Receipt Date: 20110211
  Transmission Date: 20111010
  Serious: Yes (Other)
  Sender: FDA-Public Use
  Company Number: CA-ACCORD-008211

PATIENT
  Age: 48 Year
  Sex: Male

DRUGS (1)
  1. FINASTERIDE [Suspect]
     Indication: PRODUCT USED FOR UNKNOWN INDICATION

REACTIONS (2)
  - INFERTILITY [None]
  - SPERM ANALYSIS ABNORMAL [None]
